FAERS Safety Report 4935466-1 (Version None)
Quarter: 2006Q1

REPORT INFORMATION
  Report Type: 
  Country: None (occurrence: None)
  Receive Date: 20060307
  Receipt Date: 20050815
  Transmission Date: 20060701
  Serious: No
  Sender: FDA-Public Use
  Company Number: US-GLAXOSMITHKLINE-A0570235A

PATIENT
  Age: 66 Year
  Sex: Male

DRUGS (9)
  1. REQUIP [Suspect]
     Indication: PARKINSON'S DISEASE
     Dosage: .25MG THREE TIMES PER DAY
     Route: 048
     Dates: start: 20050705, end: 20050829
  2. PRAVACHOL [Concomitant]
  3. KLONOPIN [Concomitant]
  4. AVAPRO [Concomitant]
  5. FOLGARD [Concomitant]
  6. VITAMIN E [Concomitant]
  7. ALLEGRA [Concomitant]
  8. FISH OIL [Concomitant]
  9. RESTASIS [Concomitant]

REACTIONS (4)
  - ALOPECIA [None]
  - DRUG INEFFECTIVE [None]
  - DYSKINESIA [None]
  - WEIGHT INCREASED [None]
